FAERS Safety Report 25762520 (Version 2)
Quarter: 2025Q3

REPORT INFORMATION
  Report Type: Spontaneous
  Country: ME (occurrence: ME)
  Receive Date: 20250904
  Receipt Date: 20250929
  Transmission Date: 20251021
  Serious: Yes (Hospitalization, Other)
  Sender: NOVARTIS
  Company Number: ME-002147023-NVSC2025ME138813

PATIENT
  Age: 43 Year
  Sex: Female

DRUGS (3)
  1. GILENYA [Suspect]
     Active Substance: FINGOLIMOD HYDROCHLORIDE
     Indication: Relapsing-remitting multiple sclerosis
     Route: 048
     Dates: start: 2021, end: 20250903
  2. ASPIRIN [Concomitant]
     Active Substance: ASPIRIN
     Indication: Product used for unknown indication
     Dosage: 100 MG, QD
     Route: 065
     Dates: start: 202505
  3. PLAVIX [Concomitant]
     Active Substance: CLOPIDOGREL BISULFATE
     Indication: Product used for unknown indication
     Dosage: 75 MG, QD
     Route: 065
     Dates: start: 202505, end: 20250815

REACTIONS (2)
  - Epilepsy [Recovered/Resolved]
  - Brain oedema [Recovering/Resolving]

NARRATIVE: CASE EVENT DATE: 20250830
